FAERS Safety Report 7222021-6 (Version None)
Quarter: 2011Q1

REPORT INFORMATION
  Report Type: 
  Country: None (occurrence: None)
  Receive Date: 20110112
  Receipt Date: 20110103
  Transmission Date: 20110831
  Serious: Yes (Other)
  Sender: FDA-Public Use
  Company Number: US-ELI_LILLY_AND_COMPANY-US201101001421

PATIENT
  Age: 72 Year
  Sex: Female

DRUGS (2)
  1. ASPIRIN [Concomitant]
  2. EFFIENT [Suspect]
     Indication: STENT PLACEMENT
     Dates: start: 20101025, end: 20101225

REACTIONS (2)
  - EPISTAXIS [None]
  - CORONARY ARTERIAL STENT INSERTION [None]
